FAERS Safety Report 6131259-0 (Version None)
Quarter: 2009Q1

REPORT INFORMATION
  Report Type: 
  Country: None (occurrence: None)
  Receive Date: 20090325
  Receipt Date: 20080519
  Transmission Date: 20090719
  Serious: No
  Sender: FDA-Public Use
  Company Number: US-BRISTOL-MYERS SQUIBB COMPANY-14072508

PATIENT
  Age: 57 Year
  Sex: Male
  Weight: 88 kg

DRUGS (5)
  1. ERBITUX [Suspect]
     Indication: TONSIL CANCER
     Dates: end: 20080312
  2. ERBITUX [Suspect]
     Indication: LYMPHOMA
     Dates: end: 20080312
  3. RADIATION THERAPY [Suspect]
     Dates: end: 20080318
  4. XANAX [Concomitant]
  5. BENADRYL [Concomitant]
     Indication: PREMEDICATION

REACTIONS (7)
  - ACNE [None]
  - BURNING SENSATION [None]
  - PARAESTHESIA [None]
  - RASH MACULAR [None]
  - STOMATITIS [None]
  - SUNBURN [None]
  - SWOLLEN TONGUE [None]
